FAERS Safety Report 20752851 (Version 1)
Quarter: 2022Q2

REPORT INFORMATION
  Report Type: Spontaneous
  Country: US (occurrence: None)
  Receive Date: 20220426
  Receipt Date: 20220426
  Transmission Date: 20220721
  Serious: No
  Sender: FDA-Public Use
  Company Number: US-ROCHE-2936225

PATIENT
  Sex: Female
  Weight: 77.180 kg

DRUGS (1)
  1. ESBRIET [Suspect]
     Active Substance: PIRFENIDONE
     Indication: Idiopathic pulmonary fibrosis
     Dosage: ONGOING-NO
     Route: 048

REACTIONS (2)
  - Diarrhoea [Unknown]
  - Urinary tract infection [Unknown]
